FAERS Safety Report 7378244-9 (Version None)
Quarter: 2011Q1

REPORT INFORMATION
  Report Type: 
  Country: None (occurrence: None)
  Receive Date: 20110328
  Receipt Date: 20110322
  Transmission Date: 20110831
  Serious: Yes (Death)
  Sender: FDA-Public Use
  Company Number: B0704341A

PATIENT
  Sex: Female
  Weight: 45 kg

DRUGS (13)
  1. DUROTEP [Concomitant]
     Route: 048
     Dates: start: 20090624, end: 20090707
  2. METRONIDAZOLE [Concomitant]
     Indication: ULCER
     Route: 061
  3. MUCOSTA [Concomitant]
     Route: 048
     Dates: start: 20090624, end: 20090707
  4. OXYCONTIN [Concomitant]
     Route: 048
     Dates: start: 20090624, end: 20090707
  5. LOXONIN [Concomitant]
     Route: 048
     Dates: start: 20090624, end: 20090707
  6. DORAL [Concomitant]
     Route: 048
     Dates: start: 20090624, end: 20090707
  7. PYDOXAL [Concomitant]
     Route: 048
     Dates: end: 20090707
  8. OXINORM [Concomitant]
     Route: 048
     Dates: start: 20090624, end: 20090707
  9. GABAPEN [Concomitant]
     Route: 048
     Dates: start: 20090624, end: 20090707
  10. CEFIXIME [Concomitant]
     Route: 048
     Dates: start: 20090624, end: 20090707
  11. XELODA [Concomitant]
     Dosage: 1800MG PER DAY
     Route: 048
     Dates: start: 20090624, end: 20090707
  12. TYKERB [Suspect]
     Indication: BREAST CANCER
     Dosage: 1250MG PER DAY
     Route: 048
     Dates: start: 20090624, end: 20090714
  13. BETAMETHASONE [Concomitant]
     Route: 048
     Dates: start: 20090624, end: 20090707

REACTIONS (1)
  - HEPATIC FUNCTION ABNORMAL [None]
